FAERS Safety Report 4481004-X (Version None)
Quarter: 2004Q4

REPORT INFORMATION
  Report Type: 
  Country: None (occurrence: None)
  Receive Date: 20041019
  Receipt Date: 20041006
  Transmission Date: 20050328
  Serious: No
  Sender: FDA-Public Use
  Company Number: A0528865A

PATIENT
  Age: 61 Year
  Sex: Male
  Weight: 99.7913 kg

DRUGS (4)
  1. GAVISCON [Suspect]
     Indication: DYSPEPSIA
     Dosage: ORAL
     Route: 048
     Dates: start: 20010601
  2. TENORETIC 100 [Concomitant]
  3. SAW PALMETTO [Concomitant]
  4. MULTI-VITAMIN [Concomitant]

REACTIONS (6)
  - CHOKING [None]
  - CONDITION AGGRAVATED [None]
  - DYSPNOEA [None]
  - GASTROOESOPHAGEAL REFLUX DISEASE [None]
  - HIATUS HERNIA [None]
  - NAUSEA [None]
